FAERS Safety Report 7749981-9 (Version None)
Quarter: 2011Q3

REPORT INFORMATION
  Report Type: 
  Country: None (occurrence: None)
  Receive Date: 20110914
  Receipt Date: 20110907
  Transmission Date: 20111222
  Serious: Yes (Hospitalization, Other)
  Sender: FDA-Public Use
  Company Number: JP-PFIZER INC-2011208972

PATIENT
  Age: 46 Year
  Sex: Male

DRUGS (18)
  1. BLONANSERIN [Suspect]
     Dosage: 16 MG/DAY
  2. FLUNITRAZEPAM [Suspect]
     Dosage: 4 MG/DAY
  3. CARBAMAZEPINE [Suspect]
  4. BIPERIDEN HYDROCHLORIDE TAB [Suspect]
  5. ETIZOLAM [Suspect]
  6. PROMETHAZINE [Suspect]
  7. CLOTIAZEPAM [Suspect]
  8. TOPIRAMATE [Suspect]
     Dosage: 200 MG/DAY
  9. SULPIRIDE [Suspect]
  10. CHLORPROMAZINE [Suspect]
  11. FLUVOXAMINE MALEATE [Suspect]
  12. DIAZEPAM [Suspect]
  13. ALPRAZOLAM [Suspect]
  14. BLONANSERIN [Suspect]
     Dosage: 24 MG/DAY
  15. BROMAZEPAM [Suspect]
  16. PHENOBARBITAL TAB [Suspect]
  17. TOPIRAMATE [Suspect]
     Dosage: 100 MG/DAY
  18. LITHIUM [Suspect]

REACTIONS (2)
  - NEUROLEPTIC MALIGNANT SYNDROME [None]
  - BRADYKINESIA [None]
